FAERS Safety Report 5709017-8 (Version None)
Quarter: 2008Q2

REPORT INFORMATION
  Report Type: 
  Country: None (occurrence: None)
  Receive Date: 20080418
  Receipt Date: 20080403
  Transmission Date: 20081010
  Serious: Yes (Other)
  Sender: FDA-Public Use
  Company Number: FR-BAYER-200816230GPV

PATIENT
  Age: 16 Year
  Sex: Female
  Weight: 44 kg

DRUGS (3)
  1. CIPROFLOXACIN HCL [Suspect]
     Indication: DRUG USE FOR UNKNOWN INDICATION
     Dosage: UNIT DOSE: 750 MG
     Route: 065
     Dates: start: 20080220, end: 20080304
  2. VIBRAMYCIN [Suspect]
     Indication: BRONCHOPNEUMONIA
     Route: 065
     Dates: start: 20071205, end: 20071214
  3. VIBRAMYCIN [Suspect]
     Route: 065
     Dates: start: 20080328, end: 20080401

REACTIONS (1)
  - THROMBOCYTOPENIA [None]
